FAERS Safety Report 4481282-7 (Version None)
Quarter: 2004Q4

REPORT INFORMATION
  Report Type: 
  Country: None (occurrence: None)
  Receive Date: 20040923
  Receipt Date: 20030605
  Transmission Date: 20050328
  Serious: No
  Sender: FDA-Public Use
  Company Number: USA030537596

PATIENT
  Age: 80 Year
  Sex: Male
  Weight: 89 kg

DRUGS (5)
  1. FORTEO [Suspect]
     Dates: start: 20030401, end: 20030501
  2. REMICADE [Concomitant]
  3. BEXTRA [Concomitant]
  4. METHOTREXATE [Concomitant]
  5. TESTOSTERONE [Concomitant]

REACTIONS (8)
  - CONSTIPATION [None]
  - INJECTION SITE ERYTHEMA [None]
  - INJECTION SITE HAEMORRHAGE [None]
  - INJECTION SITE URTICARIA [None]
  - MEDICATION ERROR [None]
  - MUSCLE CRAMP [None]
  - RASH PRURITIC [None]
  - SKIN DISCOLOURATION [None]
